FAERS Safety Report 26113778 (Version 1)
Quarter: 2025Q4

REPORT INFORMATION
  Report Type: Spontaneous
  Country: MX (occurrence: MX)
  Receive Date: 20251202
  Receipt Date: 20251202
  Transmission Date: 20260117
  Serious: Yes (Other)
  Sender: BAYER HEALTHCARE LLC
  Company Number: MX-BAYER-2025A158884

PATIENT

DRUGS (1)
  1. FLANAX [Suspect]
     Active Substance: NAPROXEN SODIUM
     Indication: Analgesic therapy
     Dosage: 1 DF, BID

REACTIONS (2)
  - Gastric ulcer [Unknown]
  - Gastritis [Unknown]
